FAERS Safety Report 8400199-6 (Version None)
Quarter: 2012Q2

REPORT INFORMATION
  Report Type: 
  Country: None (occurrence: None)
  Receive Date: 20120531
  Receipt Date: 20120522
  Transmission Date: 20120825
  Serious: Yes (Hospitalization, Other)
  Sender: FDA-Public Use
  Company Number: US-JNJFOC-20120517309

PATIENT
  Age: 22 Year
  Sex: Female

DRUGS (1)
  1. FENTANYL-100 [Suspect]
     Indication: PRODUCT USED FOR UNKNOWN INDICATION
     Route: 048

REACTIONS (6)
  - DRUG DIVERSION [None]
  - LOSS OF CONSCIOUSNESS [None]
  - CYANOSIS [None]
  - WRONG TECHNIQUE IN DRUG USAGE PROCESS [None]
  - INTENTIONAL DRUG MISUSE [None]
  - RESPIRATORY DEPRESSION [None]
